FAERS Safety Report 6272138-8 (Version None)
Quarter: 2009Q3

REPORT INFORMATION
  Report Type: 
  Country: None (occurrence: None)
  Receive Date: 20090717
  Receipt Date: 20090709
  Transmission Date: 20100115
  Serious: Yes (Hospitalization)
  Sender: FDA-Public Use
  Company Number: US-TEVA-201335USA

PATIENT

DRUGS (1)
  1. SALBUTAMOL SULFATE INHALATION, 0.09 MG [Suspect]
     Indication: CYSTIC FIBROSIS
     Route: 055

REACTIONS (7)
  - BACTERIAL INFECTION [None]
  - CHILLS [None]
  - COUGH [None]
  - DYSPNOEA [None]
  - MALAISE [None]
  - NIGHT SWEATS [None]
  - PYREXIA [None]
